FAERS Safety Report 21509592 (Version 2)
Quarter: 2022Q4

REPORT INFORMATION
  Report Type: Report from Study
  Country: US (occurrence: US)
  Receive Date: 20221026
  Receipt Date: 20221116
  Transmission Date: 20230112
  Serious: No
  Sender: FDA-Public Use
  Company Number: US-ABBVIE-4172565

PATIENT
  Sex: Female

DRUGS (2)
  1. IMBRUVICA [Suspect]
     Active Substance: IBRUTINIB
     Indication: Chronic lymphocytic leukaemia
     Route: 048
     Dates: start: 20180405
  2. IMBRUVICA [Suspect]
     Active Substance: IBRUTINIB
     Indication: Chronic lymphocytic leukaemia
     Route: 048

REACTIONS (8)
  - Faeces discoloured [Unknown]
  - Vomiting [Unknown]
  - Adverse food reaction [Unknown]
  - Gastric haemorrhage [Unknown]
  - Influenza [Unknown]
  - Contusion [Unknown]
  - Haemorrhagic diathesis [Unknown]
  - Hernia [Unknown]

NARRATIVE: CASE EVENT DATE: 20220101
